FAERS Safety Report 11474480 (Version 1)
Quarter: 2015Q3

REPORT INFORMATION
  Report Type: Spontaneous
  Country: US (occurrence: None)
  Receive Date: 20150908
  Receipt Date: 20150908
  Transmission Date: 20151125
  Serious: No
  Sender: FDA-Public Use
  Company Number: None

PATIENT
  Sex: Female

DRUGS (1)
  1. GILENYA [Suspect]
     Active Substance: FINGOLIMOD HYDROCHLORIDE
     Indication: MULTIPLE SCLEROSIS
     Route: 048
     Dates: start: 20150822

REACTIONS (7)
  - Disease recurrence [None]
  - Depression [None]
  - Paraesthesia [None]
  - Hypoaesthesia [None]
  - Feeling abnormal [None]
  - Palpitations [None]
  - Anxiety [None]
